FAERS Safety Report 4366488-X (Version None)
Quarter: 2004Q2

REPORT INFORMATION
  Report Type: 
  Country: None (occurrence: None)
  Receive Date: 20040527
  Receipt Date: 20010420
  Transmission Date: 20050107
  Serious: No
  Sender: FDA-Public Use
  Company Number: US-BRISTOL-MYERS SQUIBB COMPANY-12566766

PATIENT
  Age: 68 Year
  Sex: Female
  Weight: 58 kg

DRUGS (2)
  1. ERBITUX [Suspect]
     Indication: COLON CANCER METASTATIC
     Dosage: 8TH CETUXIMAB TREATMENT, DOSING 400-636 MG
     Route: 042
     Dates: start: 20040413, end: 20040413
  2. BENADRYL [Concomitant]
     Indication: PREMEDICATION

REACTIONS (1)
  - CHEILITIS [None]
